FAERS Safety Report 22020081 (Version 11)
Quarter: 2024Q4

REPORT INFORMATION
  Report Type: Report from Study
  Country: BE (occurrence: BE)
  Receive Date: 20230222
  Receipt Date: 20241206
  Transmission Date: 20250115
  Serious: Yes (Other)
  Sender: EXELIXIS
  Company Number: BE-KOREA IPSEN Pharma-2023-01167

PATIENT

DRUGS (17)
  1. CABOZANTINIB [Suspect]
     Active Substance: CABOZANTINIB
     Indication: Renal cell carcinoma
     Dosage: 60 MG, QD
     Route: 065
     Dates: start: 20221215, end: 20230124
  2. CABOZANTINIB [Suspect]
     Active Substance: CABOZANTINIB
     Dosage: 40 MG, QD
     Route: 065
     Dates: start: 20230207, end: 20240118
  3. CABOZANTINIB [Suspect]
     Active Substance: CABOZANTINIB
     Dosage: 40 MG, QD
     Route: 065
     Dates: start: 20240126
  4. BECLOMETHASONE DIPROPIONATE\FORMOTEROL FUMARATE [Concomitant]
     Active Substance: BECLOMETHASONE DIPROPIONATE\FORMOTEROL FUMARATE
     Indication: Muscle strain
     Dosage: 100/6 UG
     Route: 048
     Dates: start: 20230817
  5. BECLOMETHASONE DIPROPIONATE\FORMOTEROL FUMARATE [Concomitant]
     Active Substance: BECLOMETHASONE DIPROPIONATE\FORMOTEROL FUMARATE
     Indication: Respiratory tract infection
  6. PNEUMOCOCCAL VACCINE POLYVALENT [Concomitant]
     Active Substance: PNEUMOCOCCAL VACCINE POLYVALENT
     Indication: Prophylaxis
     Dosage: 0.5 ML, QD
     Route: 058
     Dates: start: 20231025, end: 20231025
  7. AMOXICILLIN\CLAVULANATE POTASSIUM [Concomitant]
     Active Substance: AMOXICILLIN\CLAVULANATE POTASSIUM
     Indication: Upper respiratory tract infection
     Dosage: 875/125 MG THREE TIMES PER DAY
     Route: 048
     Dates: start: 20230615, end: 20230622
  8. AMOXICILLIN\CLAVULANATE POTASSIUM [Concomitant]
     Active Substance: AMOXICILLIN\CLAVULANATE POTASSIUM
     Dosage: 875/125 MG THREE TIMES PER DAY
     Route: 048
     Dates: start: 20231009, end: 20231016
  9. D VITAL FORTE [Concomitant]
     Indication: Prophylaxis
     Dosage: 1000/880 IU
     Route: 048
     Dates: end: 20240526
  10. Ciprofloxacine EG [Concomitant]
     Indication: Dysuria
     Route: 048
     Dates: start: 20230131, end: 20230205
  11. Ciprofloxacine EG [Concomitant]
     Indication: Nocturia
  12. NITROFURANTOIN [Concomitant]
     Active Substance: NITROFURANTOIN
     Indication: Dysuria
     Route: 048
     Dates: start: 20230130, end: 20230130
  13. NITROFURANTOIN [Concomitant]
     Active Substance: NITROFURANTOIN
     Indication: Nocturia
  14. SYNGEL [Concomitant]
     Indication: Dysphagia
     Dosage: 5 ML, TID
     Route: 048
     Dates: start: 20230525
  15. MEDROL [Concomitant]
     Active Substance: METHYLPREDNISOLONE
     Indication: Respiratory tract infection
     Dosage: 16 MG, QD
     Route: 048
     Dates: start: 20230817, end: 20230818
  16. AVELOX [Concomitant]
     Active Substance: MOXIFLOXACIN HYDROCHLORIDE
     Indication: COVID-19
     Route: 048
     Dates: start: 20231221, end: 20240120
  17. AVELOX [Concomitant]
     Active Substance: MOXIFLOXACIN HYDROCHLORIDE
     Indication: Pneumonia

REACTIONS (13)
  - Hyperbilirubinaemia [Unknown]
  - Oropharyngeal pain [Recovered/Resolved]
  - Dyspepsia [Not Recovered/Not Resolved]
  - Dry mouth [Unknown]
  - Dysgeusia [Unknown]
  - Muscle spasms [Not Recovered/Not Resolved]
  - Abdominal pain upper [Recovered/Resolved]
  - Fatigue [Not Recovered/Not Resolved]
  - Abdominal pain [Unknown]
  - Diarrhoea [Not Recovered/Not Resolved]
  - Nausea [Not Recovered/Not Resolved]
  - Decreased appetite [Not Recovered/Not Resolved]
  - Weight decreased [Unknown]

NARRATIVE: CASE EVENT DATE: 20221229
